FAERS Safety Report 23850995 (Version 3)
Quarter: 2024Q2

REPORT INFORMATION
  Report Type: Spontaneous
  Country: CN (occurrence: CN)
  Receive Date: 20240514
  Receipt Date: 20240529
  Transmission Date: 20240716
  Serious: Yes (Death, Other)
  Sender: FDA-Public Use
  Company Number: CN-BRISTOL-MYERS SQUIBB COMPANY-2024-073925

PATIENT
  Age: 16 Year
  Sex: Male

DRUGS (5)
  1. AZACITIDINE [Suspect]
     Active Substance: AZACITIDINE
     Indication: Acute lymphocytic leukaemia recurrent
     Dosage: D1-7
  2. VENETOCLAX [Suspect]
     Active Substance: VENETOCLAX
     Indication: Acute lymphocytic leukaemia recurrent
     Dosage: D1
  3. VENETOCLAX [Suspect]
     Active Substance: VENETOCLAX
     Dosage: D2
  4. VENETOCLAX [Suspect]
     Active Substance: VENETOCLAX
     Dosage: D3-14
  5. SELINEXOR [Concomitant]
     Active Substance: SELINEXOR
     Indication: Acute lymphocytic leukaemia recurrent

REACTIONS (7)
  - Anaemia [Unknown]
  - Febrile neutropenia [Unknown]
  - Thrombocytopenia [Unknown]
  - Pneumonitis [Unknown]
  - Infection [Fatal]
  - Off label use [Unknown]
  - Neutropenia [Unknown]
